FAERS Safety Report 16414362 (Version 1)
Quarter: 2019Q2

REPORT INFORMATION
  Report Type: Spontaneous
  Country: US (occurrence: US)
  Receive Date: 20190611
  Receipt Date: 20190611
  Transmission Date: 20190711
  Serious: No
  Sender: FDA-Public Use
  Company Number: US-009507513-1906USA003264

PATIENT
  Age: 58 Year
  Sex: Male

DRUGS (3)
  1. KEYTRUDA [Suspect]
     Active Substance: PEMBROLIZUMAB
     Indication: NON-SMALL CELL LUNG CANCER
     Dosage: 200 MILLIGRAM,EVERY 3 WEEKS
     Route: 042
  2. PEMETREXED DISODIUM [Suspect]
     Active Substance: PEMETREXED DISODIUM
  3. CARBOPLATIN. [Suspect]
     Active Substance: CARBOPLATIN

REACTIONS (1)
  - Fatigue [Recovered/Resolved]
